FAERS Safety Report 5204048-9 (Version None)
Quarter: 2007Q1

REPORT INFORMATION
  Report Type: 
  Country: None (occurrence: None)
  Receive Date: 20070110
  Receipt Date: 20051103
  Transmission Date: 20070707
  Serious: No
  Sender: FDA-Public Use
  Company Number: US-BRISTOL-MYERS SQUIBB COMPANY-13167671

PATIENT
  Sex: Male
  Weight: 6 kg

DRUGS (3)
  1. ABILIFY [Suspect]
     Indication: SCHIZOPHRENIA
     Route: 048
  2. WELLBUTRIN XL [Concomitant]
  3. MULTI-VITAMIN [Concomitant]

REACTIONS (3)
  - BALANCE DISORDER [None]
  - MOBILITY DECREASED [None]
  - TREMOR [None]
